FAERS Safety Report 14372810 (Version 1)
Quarter: 2018Q1

REPORT INFORMATION
  Report Type: Spontaneous
  Country: DE (occurrence: DE)
  Receive Date: 20180110
  Receipt Date: 20180110
  Transmission Date: 20180509
  Serious: Yes (Death, Other)
  Sender: FDA-Public Use
  Company Number: DE-ARBOR PHARMACEUTICALS, LLC-DE-2018ARB000003

PATIENT
  Sex: Male

DRUGS (2)
  1. TRIPTODUR [Suspect]
     Active Substance: TRIPTORELIN
     Indication: PRODUCT USED FOR UNKNOWN INDICATION
     Dosage: 22.5 MG, UNK
  2. TRIPTODUR [Suspect]
     Active Substance: TRIPTORELIN
     Dosage: 11.25 MG, UNK

REACTIONS (3)
  - Neoplasm malignant [Unknown]
  - Metastasis [Unknown]
  - Disease progression [Fatal]
